FAERS Safety Report 16446707 (Version 3)
Quarter: 2019Q3

REPORT INFORMATION
  Report Type: Report from Study
  Country: US (occurrence: US)
  Receive Date: 20190618
  Receipt Date: 20190906
  Transmission Date: 20191004
  Serious: Yes (Hospitalization, Other)
  Sender: FDA-Public Use
  Company Number: US-ACTELION-A-NJ2019-186628

PATIENT
  Age: 76 Year
  Sex: Female
  Weight: 66.67 kg

DRUGS (3)
  1. TRACLEER [Suspect]
     Active Substance: BOSENTAN
     Indication: PULMONARY ARTERIAL HYPERTENSION
     Dosage: 125 MG, QD
     Route: 048
  2. COUMADIN [Concomitant]
     Active Substance: WARFARIN SODIUM
  3. TRACLEER [Suspect]
     Active Substance: BOSENTAN
     Dosage: 125 MG, BID
     Route: 048

REACTIONS (13)
  - Condition aggravated [Unknown]
  - Syncope [Recovering/Resolving]
  - Gastrointestinal disorder [Unknown]
  - Dyspnoea [Unknown]
  - Fall [Unknown]
  - Dyspnoea exertional [Unknown]
  - Head injury [Unknown]
  - Fibrosis [Unknown]
  - Loss of consciousness [Unknown]
  - Dysstasia [Unknown]
  - Contusion [Unknown]
  - Oedema [Unknown]
  - Cough [Unknown]

NARRATIVE: CASE EVENT DATE: 20190716
